FAERS Safety Report 6046654-8 (Version None)
Quarter: 2009Q1

REPORT INFORMATION
  Report Type: 
  Country: None (occurrence: None)
  Receive Date: 20090122
  Receipt Date: 20090120
  Transmission Date: 20090719
  Serious: Yes (Disabling, Other)
  Sender: FDA-Public Use
  Company Number: BR-BAYER-200911356LA

PATIENT
  Age: 17 Year
  Sex: Male

DRUGS (3)
  1. BETAFERON [Suspect]
     Indication: DRUG USE FOR UNKNOWN INDICATION
     Route: 058
     Dates: start: 20080101
  2. TORVAL [Concomitant]
     Indication: EPILEPSY
     Dosage: TOTAL DAILY DOSE: 600 MG  UNIT DOSE: 300 MG
     Route: 048
  3. OXCARB [Concomitant]
     Indication: EPILEPSY
     Dosage: TOTAL DAILY DOSE: 600 MG  UNIT DOSE: 300 MG
     Route: 048

REACTIONS (6)
  - BLINDNESS TRANSIENT [None]
  - CONVULSION [None]
  - EPILEPSY [None]
  - HEADACHE [None]
  - PAIN IN EXTREMITY [None]
  - SLUGGISHNESS [None]
